FAERS Safety Report 13193092 (Version 3)
Quarter: 2017Q1

REPORT INFORMATION
  Report Type: Spontaneous
  Country: US (occurrence: US)
  Receive Date: 20170207
  Receipt Date: 20170320
  Transmission Date: 20170428
  Serious: No
  Sender: FDA-Public Use
  Company Number: US-ASTRAZENECA-2017SE11316

PATIENT
  Sex: Female
  Weight: 48.1 kg

DRUGS (4)
  1. ALBUTEROL SULFATE RESCUE INHALER [Concomitant]
     Indication: DYSPNOEA
     Dosage: 2.5MG AS REQUIRED
     Route: 055
     Dates: start: 201510
  2. TUDORZA PRESSAIR [Suspect]
     Active Substance: ACLIDINIUM BROMIDE
     Indication: CHRONIC OBSTRUCTIVE PULMONARY DISEASE
     Dosage: 1 PUFF TWICE DAILY
     Route: 055
     Dates: start: 20161122
  3. PROAIR HFA [Concomitant]
     Active Substance: ALBUTEROL SULFATE
     Indication: DYSPNOEA
     Dosage: 90MCG, 2 PUFFS EVERY FOUR HOURS AS NEEDED
     Route: 055
     Dates: start: 201510
  4. ADVAIR DISKUS [Concomitant]
     Active Substance: FLUTICASONE PROPIONATE\SALMETEROL XINAFOATE
     Indication: DYSPNOEA
     Route: 055
     Dates: start: 201510

REACTIONS (2)
  - Device malfunction [Unknown]
  - Drug dose omission [Unknown]
